FAERS Safety Report 8395045 (Version 3)
Quarter: 2013Q1

REPORT INFORMATION
  Report Type: Spontaneous
  Country: US (occurrence: None)
  Receive Date: 20120125
  Receipt Date: 20121113
  Transmission Date: 20140127
  Serious: Yes (Hospitalization)
  Sender: FDA-Public Use
  Company Number: US-007532

PATIENT
  Age: 45 Year
  Sex: Female

DRUGS (8)
  1. TRANEXAMIC ACID [Suspect]
     Indication: MENORRHAGIA
     Dosage: 1300 MG TID, FOR 5 DAYS ORAL
     Route: 048
     Dates: start: 201112, end: 201112
  2. COUMADIN [Suspect]
     Indication: ANTICOAGULATION DRUG LEVEL
     Dates: start: 201112, end: 201112
  3. CALCIUM WITH VITAMIN D /01233101/ [Concomitant]
  4. L-LYSINE /00919901/ [Concomitant]
  5. CRANBERRY /01512301/ [Concomitant]
  6. IRON [Concomitant]
  7. GELATIN [Concomitant]
  8. LORATADINE [Concomitant]

REACTIONS (5)
  - Deep vein thrombosis [None]
  - Pulmonary embolism [None]
  - Menorrhagia [None]
  - Retroperitoneal haematoma [None]
  - No therapeutic response [None]
